FAERS Safety Report 6901957-7 (Version None)
Quarter: 2010Q3

REPORT INFORMATION
  Report Type: 
  Country: None (occurrence: None)
  Receive Date: 20100803
  Receipt Date: 20080331
  Transmission Date: 20110219
  Serious: Yes (Other)
  Sender: FDA-Public Use
  Company Number: US-PFIZER INC-2008028711

PATIENT
  Sex: Female
  Weight: 102.27 kg

DRUGS (2)
  1. LYRICA [Suspect]
     Indication: NECK INJURY
     Dates: start: 20071101
  2. LORTAB [Concomitant]

REACTIONS (1)
  - WEIGHT INCREASED [None]
